FAERS Safety Report 5159255-0 (Version None)
Quarter: 2006Q4

REPORT INFORMATION
  Report Type: 
  Country: None (occurrence: None)
  Receive Date: 20061120
  Receipt Date: 20061110
  Transmission Date: 20070319
  Serious: Yes (Other)
  Sender: FDA-Public Use
  Company Number: THQ2006A01069

PATIENT
  Age: 83 Year
  Sex: Female

DRUGS (1)
  1. LANZOR [Suspect]
     Dosage: PER ORAL
     Route: 048
     Dates: start: 20051001, end: 20061028

REACTIONS (5)
  - AGRANULOCYTOSIS [None]
  - ANAEMIA [None]
  - LEUKOPENIA [None]
  - MYELODYSPLASTIC SYNDROME [None]
  - PLATELET COUNT DECREASED [None]
